FAERS Safety Report 17771827 (Version 1)
Quarter: 2020Q2

REPORT INFORMATION
  Report Type: Spontaneous
  Country: IT (occurrence: IT)
  Receive Date: 20200512
  Receipt Date: 20200512
  Transmission Date: 20200714
  Serious: Yes (Hospitalization, Other)
  Sender: FDA-Public Use
  Company Number: IT-PFIZER INC-2020185943

PATIENT
  Age: 76 Year
  Sex: Male

DRUGS (14)
  1. CEFTRIAXONE. [Concomitant]
     Active Substance: CEFTRIAXONE
     Indication: CORONAVIRUS INFECTION
     Dosage: 1 DF, 1X/DAY
     Route: 048
     Dates: start: 20200322, end: 20200329
  2. NORVASC [Suspect]
     Active Substance: AMLODIPINE BESYLATE
     Indication: HYPERTENSION
     Dosage: 10 MG, 1X/DAY
     Route: 048
     Dates: start: 20200326, end: 20200407
  3. TRELEGY ELLIPTA [Concomitant]
     Active Substance: FLUTICASONE FUROATE\UMECLIDINIUM BROMIDE\VILANTEROL TRIFENATATE
     Indication: RESPIRATORY FAILURE
     Dosage: UNK
  4. RITONAVIR. [Suspect]
     Active Substance: RITONAVIR
     Indication: CORONAVIRUS INFECTION
     Dosage: 100 MG, 1X/DAY
     Route: 048
     Dates: start: 20200322, end: 20200402
  5. LASIX [Concomitant]
     Active Substance: FUROSEMIDE
     Dosage: UNK
  6. OMEPRAZOLE. [Concomitant]
     Active Substance: OMEPRAZOLE
     Dosage: UNK
  7. CLEXANE T [Suspect]
     Active Substance: ENOXAPARIN SODIUM
     Indication: THROMBOSIS PROPHYLAXIS
     Dosage: 6000 KIU, 1X/DAY
     Route: 058
     Dates: start: 20200322, end: 20200413
  8. EUTIROX [Concomitant]
     Active Substance: LEVOTHYROXINE SODIUM
     Indication: HYPOTHYROIDISM
     Dosage: UNK
  9. AZITHROMYCIN TEVA [Suspect]
     Active Substance: AZITHROMYCIN
     Indication: CORONAVIRUS INFECTION
     Dosage: 500 MG, 1X/DAY
     Route: 048
     Dates: start: 20200322, end: 20200329
  10. NORVASC [Suspect]
     Active Substance: AMLODIPINE BESYLATE
     Dosage: UNK (REDUCED DOSE)
     Dates: start: 202004
  11. PLAQUENIL [Suspect]
     Active Substance: HYDROXYCHLOROQUINE SULFATE
     Indication: CORONAVIRUS INFECTION
     Dosage: 400 MG, 1X/DAY
     Route: 048
     Dates: start: 20200322, end: 20200327
  12. FOLIFILL [Concomitant]
     Dosage: UNK
  13. URBASON SOLUB [Concomitant]
     Active Substance: METHYLPREDNISOLONE SODIUM SUCCINATE
     Indication: CORONAVIRUS INFECTION
     Dosage: 1 DF, 1X/DAY
     Route: 042
     Dates: start: 20200324, end: 20200421
  14. DARUNAVIR [Suspect]
     Active Substance: DARUNAVIR
     Indication: CORONAVIRUS INFECTION
     Dosage: 800 MG, 1X/DAY
     Route: 048
     Dates: start: 20200322, end: 20200402

REACTIONS (3)
  - Acute generalised exanthematous pustulosis [Recovering/Resolving]
  - Rash pustular [Recovering/Resolving]
  - Erythema [Recovering/Resolving]

NARRATIVE: CASE EVENT DATE: 20200413
